FAERS Safety Report 4566882-8 (Version None)
Quarter: 2005Q1

REPORT INFORMATION
  Report Type: 
  Country: None (occurrence: None)
  Receive Date: 20050201
  Receipt Date: 20021023
  Transmission Date: 20050727
  Serious: Yes (Other)
  Sender: FDA-Public Use
  Company Number: US-BRISTOL-MYERS SQUIBB COMPANY-12088779

PATIENT
  Age: 30 Year
  Sex: Female

DRUGS (1)
  1. STADOL [Suspect]
     Indication: MIGRAINE
     Dosage: 10MG/ML-1 SPRAY DAILY AS NEEDED,1 OR 2 SPRAYS PRN DAILY, 1 SPRAY TWICE DAILY AS NEEDED
     Route: 045
     Dates: start: 19950201

REACTIONS (1)
  - DEPENDENCE [None]
